FAERS Safety Report 7513013-8 (Version None)
Quarter: 2011Q2

REPORT INFORMATION
  Report Type: 
  Country: None (occurrence: None)
  Receive Date: 20110525
  Receipt Date: 20110525
  Transmission Date: 20111010
  Serious: No
  Sender: FDA-Public Use
  Company Number: None

PATIENT
  Age: 24 Year
  Sex: Male
  Weight: 68.9467 kg

DRUGS (1)
  1. PAROXETINE HCL [Suspect]

REACTIONS (1)
  - ANORGASMIA [None]
